FAERS Safety Report 11143448 (Version 1)
Quarter: 2015Q2

REPORT INFORMATION
  Report Type: Report from Study
  Country: JP (occurrence: JP)
  Receive Date: 20150526
  Receipt Date: 20150526
  Transmission Date: 20150821
  Serious: Yes (Death, Other)
  Sender: FDA-Public Use
  Company Number: JP-ROCHE-1582200

PATIENT
  Age: 68 Year
  Sex: Male

DRUGS (9)
  1. BAYASPIRIN [Concomitant]
     Active Substance: ASPIRIN
     Indication: CARDIAC FAILURE
     Dosage: OTHER PURPOSES: RESPIRATORY FAILURE
     Route: 048
     Dates: end: 20150514
  2. SPIRONOLACTONE. [Concomitant]
     Active Substance: SPIRONOLACTONE
     Indication: CARDIAC FAILURE
     Dosage: OTHER PURPOSES: RESPIRATORY FAILURE
     Route: 048
     Dates: end: 20150514
  3. PREDONINE [Concomitant]
     Active Substance: PREDNISOLONE\PREDNISOLONE ACETATE\PREDNISOLONE SODIUM SUCCINATE
     Indication: CARDIAC FAILURE
     Route: 048
     Dates: end: 20150514
  4. WARFARIN [Concomitant]
     Active Substance: WARFARIN
     Indication: CARDIAC FAILURE
     Dosage: OTHER PURPOSES: RESPIRATORY FAILURE
     Route: 048
     Dates: end: 20150514
  5. RENIVACE [Concomitant]
     Active Substance: ENALAPRIL
     Indication: CARDIAC FAILURE
     Dosage: OTHER PURPOSES: RESPIRATORY FAILURE
     Route: 048
     Dates: end: 20150514
  6. NEXIUM [Concomitant]
     Active Substance: ESOMEPRAZOLE MAGNESIUM
     Indication: CARDIAC FAILURE
     Dosage: OTHER PURPOSES: RESPIRATORY FAILURE
     Route: 048
     Dates: end: 20150514
  7. METHOXY POLYETHYLENE GLYCOL-EPOETIN BETA [Suspect]
     Active Substance: METHOXY POLYETHYLENE GLYCOL-EPOETIN BETA
     Indication: NEPHROGENIC ANAEMIA
     Dosage: MOST RECENT DOSE: 24/APR/2015
     Route: 042
  8. MAINTATE [Concomitant]
     Active Substance: BISOPROLOL FUMARATE
     Indication: CARDIAC FAILURE
     Dosage: OTHER PURPOSES: RESPIRATORY FAILURE
     Route: 048
     Dates: end: 20150514
  9. CLARITH [Concomitant]
     Active Substance: CLARITHROMYCIN
     Indication: CARDIAC FAILURE
     Dosage: OTHER PURPOSES: RESPIRATORY FAILURE
     Route: 048
     Dates: end: 20150514

REACTIONS (3)
  - Chronic obstructive pulmonary disease [Unknown]
  - Sudden death [Fatal]
  - Cardiac failure [Unknown]

NARRATIVE: CASE EVENT DATE: 20150514
